FAERS Safety Report 7732826-0 (Version None)
Quarter: 2011Q3

REPORT INFORMATION
  Report Type: 
  Country: None (occurrence: None)
  Receive Date: 20110901
  Receipt Date: 20110818
  Transmission Date: 20111222
  Serious: Yes (Hospitalization, Other)
  Sender: FDA-Public Use
  Company Number: AUR-APL-2011-04561

PATIENT
  Age: 34 Year
  Sex: Female

DRUGS (6)
  1. IMPLANON [Suspect]
     Indication: CONTRACEPTION
     Dosage: 968 MG0,
     Dates: start: 20051101
  2. LAMIVUDINE [Suspect]
     Indication: ANTIVIRAL TREATMENT
     Dates: start: 20050801
  3. ZIDOVUDINE [Suspect]
     Indication: ANTIVIRAL TREATMENT
     Dates: start: 20050801
  4. TENOFOVIR DISOPROXIL FUMARATE [Suspect]
     Indication: ANTIVIRAL TREATMENT
  5. EFAVIRENZ [Suspect]
     Indication: ANTIVIRAL TREATMENT
     Dates: start: 20050801
  6. EMTRICITABINE [Suspect]
     Indication: ANTIVIRAL TREATMENT

REACTIONS (5)
  - MATERNAL EXPOSURE DURING PREGNANCY [None]
  - AMENORRHOEA [None]
  - ECTOPIC PREGNANCY [None]
  - INCORRECT DRUG ADMINISTRATION DURATION [None]
  - PREGNANCY WITH IMPLANT CONTRACEPTIVE [None]
